FAERS Safety Report 8828152 (Version 2)
Quarter: 2012Q4

REPORT INFORMATION
  Report Type: 
  Country: US (occurrence: US)
  Receive Date: 20121005
  Receipt Date: 20121018
  Transmission Date: 20130627
  Serious: No
  Sender: FDA-Public Use
  Company Number: US-PFIZER INC-2012244576

PATIENT
  Age: 47 Year
  Sex: Female
  Weight: 58.5 kg

DRUGS (1)
  1. RELPAX [Suspect]
     Indication: MIGRAINE
     Dosage: 20 mg, daily
     Route: 048
     Dates: start: 20120717, end: 20120718

REACTIONS (2)
  - Cheilitis [Recovered/Resolved]
  - Lip swelling [Recovered/Resolved]
